FAERS Safety Report 9922863 (Version 2)
Quarter: 2014Q1

REPORT INFORMATION
  Report Type: Report from Study
  Country: US (occurrence: US)
  Receive Date: 20140225
  Receipt Date: 20140228
  Transmission Date: 20141002
  Serious: No
  Sender: FDA-Public Use
  Company Number: US-ABBVIE-13P-163-1169788-00

PATIENT
  Sex: Male

DRUGS (20)
  1. ANDROGEL [Suspect]
     Indication: TESTICULAR FAILURE
     Dosage: PUMP BOTTLE
     Route: 061
     Dates: end: 2013
  2. ANDROGEL [Suspect]
     Route: 061
     Dates: start: 2013
  3. AMLODIPINE [Concomitant]
     Indication: PRODUCT USED FOR UNKNOWN INDICATION
  4. ASPIRIN [Concomitant]
     Indication: PRODUCT USED FOR UNKNOWN INDICATION
  5. ATENOLOL CHLORTHALIDONE [Concomitant]
     Indication: PRODUCT USED FOR UNKNOWN INDICATION
  6. CLONIDINE [Concomitant]
     Indication: PRODUCT USED FOR UNKNOWN INDICATION
  7. FIORICET [Concomitant]
     Indication: PRODUCT USED FOR UNKNOWN INDICATION
  8. FLEXERIL [Concomitant]
     Indication: PRODUCT USED FOR UNKNOWN INDICATION
  9. LANSOPRAZOLE [Concomitant]
     Indication: PRODUCT USED FOR UNKNOWN INDICATION
  10. LANTUS [Concomitant]
     Indication: PRODUCT USED FOR UNKNOWN INDICATION
  11. LISINOPRIL [Concomitant]
     Indication: PRODUCT USED FOR UNKNOWN INDICATION
  12. LYRICA [Concomitant]
     Indication: PRODUCT USED FOR UNKNOWN INDICATION
  13. METFORMIN [Concomitant]
     Indication: PRODUCT USED FOR UNKNOWN INDICATION
  14. PRAVASTATIN [Concomitant]
     Indication: PRODUCT USED FOR UNKNOWN INDICATION
  15. PROAIR [Concomitant]
     Indication: PRODUCT USED FOR UNKNOWN INDICATION
  16. PROZAC [Concomitant]
     Indication: PRODUCT USED FOR UNKNOWN INDICATION
  17. REMERON [Concomitant]
     Indication: PRODUCT USED FOR UNKNOWN INDICATION
  18. SEROQUEL [Concomitant]
     Indication: PRODUCT USED FOR UNKNOWN INDICATION
  19. TRAMADOL [Concomitant]
     Indication: PRODUCT USED FOR UNKNOWN INDICATION
  20. VISTARIL [Concomitant]
     Indication: PRODUCT USED FOR UNKNOWN INDICATION

REACTIONS (2)
  - Hot flush [Not Recovered/Not Resolved]
  - Incorrect dose administered [Not Recovered/Not Resolved]
